FAERS Safety Report 9603052 (Version 1)
Quarter: 2013Q4

REPORT INFORMATION
  Report Type: Spontaneous
  Country: GB (occurrence: GB)
  Receive Date: 20131007
  Receipt Date: 20131007
  Transmission Date: 20140711
  Serious: Yes (Life-Threatening)
  Sender: FDA-Public Use
  Company Number: GB-BRISTOL-MYERS SQUIBB COMPANY-19442136

PATIENT
  Age: 70 Year
  Sex: Male
  Weight: 107.8 kg

DRUGS (18)
  1. ELIQUIS [Suspect]
     Indication: PROPHYLAXIS
     Route: 048
     Dates: start: 20130806
  2. METFORMIN [Concomitant]
     Route: 048
     Dates: start: 20130805
  3. SIMVASTATIN [Concomitant]
     Route: 048
     Dates: start: 20130805
  4. AMLODIPINE [Concomitant]
     Route: 048
     Dates: start: 20130805
  5. ATENOLOL [Concomitant]
     Route: 048
  6. COD LIVER OIL [Concomitant]
  7. OMEPRAZOLE [Concomitant]
  8. TRAMADOL [Concomitant]
  9. LACTULOSE [Concomitant]
  10. FERROUS FUMARATE [Concomitant]
  11. ORAMORPH [Concomitant]
  12. ONDANSETRON [Concomitant]
  13. GLYCERYL TRINITRATE [Concomitant]
     Dosage: SPRAY
  14. SUDAFED [Concomitant]
     Dosage: SPRAY
  15. SENNA [Concomitant]
  16. FLUCLOXACILLIN [Concomitant]
  17. BENZYLPENICILLIN [Concomitant]
  18. AMOXICILLIN [Concomitant]

REACTIONS (1)
  - Pulmonary embolism [Unknown]
